FAERS Safety Report 4292258-7 (Version None)
Quarter: 2004Q1

REPORT INFORMATION
  Report Type: 
  Country: None (occurrence: None)
  Receive Date: 20040211
  Receipt Date: 20040130
  Transmission Date: 20041129
  Serious: Yes (Hospitalization, Other)
  Sender: FDA-Public Use
  Company Number: GR-GLAXOSMITHKLINE-B0321682A

PATIENT
  Age: 56 Year
  Sex: Male

DRUGS (2)
  1. TIMENTIN [Suspect]
     Indication: POSTOPERATIVE INFECTION
     Route: 042
     Dates: start: 20031110, end: 20031117
  2. METRONIDAZOLE [Concomitant]
     Dosage: 1U TWICE PER DAY
     Route: 042

REACTIONS (1)
  - UPPER GASTROINTESTINAL HAEMORRHAGE [None]
